FAERS Safety Report 21243089 (Version 2)
Quarter: 2022Q3

REPORT INFORMATION
  Report Type: Spontaneous
  Country: US (occurrence: US)
  Receive Date: 20220823
  Receipt Date: 20220824
  Transmission Date: 20221027
  Serious: Yes (Other)
  Sender: FDA-Public Use
  Company Number: US-PFIZER INC-PV202200046071

PATIENT
  Age: 73 Year
  Sex: Male

DRUGS (2)
  1. LOMOTIL [Suspect]
     Active Substance: ATROPINE SULFATE\DIPHENOXYLATE HYDROCHLORIDE
     Dosage: UNK
  2. OFEV [Suspect]
     Active Substance: NINTEDANIB
     Indication: Idiopathic pulmonary fibrosis
     Dosage: 150 MG, 2X/DAY
     Route: 048
     Dates: start: 20210701

REACTIONS (21)
  - Bronchitis [Recovering/Resolving]
  - Gastrointestinal pain [Recovered/Resolved]
  - Diarrhoea [Not Recovered/Not Resolved]
  - Productive cough [Not Recovered/Not Resolved]
  - Wheezing [Not Recovered/Not Resolved]
  - Nasopharyngitis [Not Recovered/Not Resolved]
  - Nasal congestion [Unknown]
  - Productive cough [Not Recovered/Not Resolved]
  - Throat clearing [Not Recovered/Not Resolved]
  - Malaise [Not Recovered/Not Resolved]
  - Dyspnoea [Not Recovered/Not Resolved]
  - Hypersomnia [Not Recovered/Not Resolved]
  - Weight decreased [Not Recovered/Not Resolved]
  - Diarrhoea [Recovered/Resolved]
  - Weight increased [Recovered/Resolved]
  - Faeces discoloured [Recovered/Resolved]
  - Fatigue [Not Recovered/Not Resolved]
  - Asthenia [Not Recovered/Not Resolved]
  - Memory impairment [Not Recovered/Not Resolved]
  - Constipation [Unknown]
  - Product dose omission issue [Unknown]

NARRATIVE: CASE EVENT DATE: 20210701
